FAERS Safety Report 15260747 (Version 3)
Quarter: 2019Q1

REPORT INFORMATION
  Report Type: Spontaneous
  Country: US (occurrence: US)
  Receive Date: 20180809
  Receipt Date: 20190201
  Transmission Date: 20190417
  Serious: Yes (Hospitalization)
  Sender: FDA-Public Use
  Company Number: US-STRIDES ARCOLAB LIMITED-2018SP006621

PATIENT
  Age: 64 Year
  Sex: Male

DRUGS (6)
  1. EMTRICITABINE [Suspect]
     Active Substance: EMTRICITABINE
     Indication: HIV-ASSOCIATED NEUROCOGNITIVE DISORDER
     Dosage: UNK
     Route: 065
  2. DOLUTEGRAVIR [Suspect]
     Active Substance: DOLUTEGRAVIR
     Indication: HIV-ASSOCIATED NEUROCOGNITIVE DISORDER
     Dosage: UNK
     Route: 065
  3. FLUCONAZOLE. [Concomitant]
     Active Substance: FLUCONAZOLE
     Indication: PROPHYLAXIS
     Dosage: UNK, DAILY
     Route: 065
  4. LEVOFLOXACIN. [Concomitant]
     Active Substance: LEVOFLOXACIN
     Indication: PSEUDOMONAS INFECTION
     Dosage: UNK
     Route: 065
  5. TENOFOVIR DISOPROXIL FUMARATE. [Suspect]
     Active Substance: TENOFOVIR DISOPROXIL FUMARATE
     Indication: HIV-ASSOCIATED NEUROCOGNITIVE DISORDER
     Dosage: UNK
     Route: 065
  6. OLANZAPINE. [Concomitant]
     Active Substance: OLANZAPINE
     Indication: BIPOLAR DISORDER
     Dosage: UNK
     Route: 065

REACTIONS (9)
  - Delirium [Unknown]
  - Impulsive behaviour [Unknown]
  - Unmasking of previously unidentified disease [Unknown]
  - Mental status changes [Unknown]
  - Agitation [Unknown]
  - Tumour lysis syndrome [Unknown]
  - Hypercalcaemia [Unknown]
  - High-grade B-cell lymphoma [Unknown]
  - Immune reconstitution inflammatory syndrome [Unknown]
